FAERS Safety Report 21265768 (Version 1)
Quarter: 2022Q3

REPORT INFORMATION
  Report Type: Other
  Country: None (occurrence: US)
  Receive Date: 20220829
  Receipt Date: 20220829
  Transmission Date: 20221027
  Serious: Yes (Other)
  Sender: FDA-Public Use
  Company Number: US-Appco Pharma LLC-2132329

PATIENT
  Age: 9 Year

DRUGS (1)
  1. DOXEPIN [Suspect]
     Active Substance: DOXEPIN
     Indication: Product used for unknown indication
     Route: 065

REACTIONS (5)
  - Poor sucking reflex [Unknown]
  - Hypotonia neonatal [Unknown]
  - Vomiting [Unknown]
  - Weight decrease neonatal [Unknown]
  - Exposure via breast milk [Unknown]
